FAERS Safety Report 6041718-7 (Version None)
Quarter: 2009Q1

REPORT INFORMATION
  Report Type: 
  Country: None (occurrence: None)
  Receive Date: 20090116
  Receipt Date: 20090105
  Transmission Date: 20090719
  Serious: Yes (Other)
  Sender: FDA-Public Use
  Company Number: NL-TEVA-183347ISR

PATIENT
  Age: 44 Year
  Sex: Female

DRUGS (7)
  1. DOXORUBICIN HCL [Suspect]
     Indication: BREAST CANCER
  2. CYCLOPHOSPHAMIDE [Suspect]
     Indication: BREAST CANCER
  3. TRASTUZUMAB [Suspect]
  4. TAMOXIFEN CITRATE [Concomitant]
     Indication: BREAST CANCER
  5. LHRH AGONIST [Concomitant]
     Indication: METASTASIS
  6. CAPECITABINE [Concomitant]
  7. DOCETAXEL [Concomitant]

REACTIONS (4)
  - CARDIOMYOPATHY [None]
  - METASTASES TO BONE [None]
  - METASTASES TO CENTRAL NERVOUS SYSTEM [None]
  - METASTASES TO LIVER [None]
